FAERS Safety Report 9570747 (Version 2)
Quarter: 2013Q4

REPORT INFORMATION
  Report Type: Spontaneous
  Country: AU (occurrence: AU)
  Receive Date: 20131001
  Receipt Date: 20131012
  Transmission Date: 20140711
  Serious: Yes (Hospitalization, Other)
  Sender: FDA-Public Use
  Company Number: AU-AMGEN-AUSSP2013067679

PATIENT
  Age: 89 Year
  Sex: Female
  Weight: 53 kg

DRUGS (3)
  1. PROLIA [Suspect]
     Indication: OSTEOPOROSIS POSTMENOPAUSAL
     Dosage: 60 MG, Q6MO
     Route: 058
     Dates: start: 20111003
  2. VITAMIN D                          /00107901/ [Concomitant]
     Indication: BONE DISORDER
     Dosage: 25 MG, QD
     Dates: start: 20120612
  3. SINEMET [Concomitant]
     Indication: PARKINSON^S DISEASE
     Dosage: 25/100, 1 1/2, TID

REACTIONS (3)
  - Hip fracture [Unknown]
  - Fall [Unknown]
  - Femoral neck fracture [Recovered/Resolved]
